FAERS Safety Report 7675291-4 (Version None)
Quarter: 2011Q3

REPORT INFORMATION
  Report Type: 
  Country: None (occurrence: None)
  Receive Date: 20110810
  Receipt Date: 20110801
  Transmission Date: 20111222
  Serious: Yes (Hospitalization)
  Sender: FDA-Public Use
  Company Number: US-SANOFI-AVENTIS-2011SA049214

PATIENT
  Age: 67 Year
  Sex: Male

DRUGS (9)
  1. HEPARIN [Concomitant]
  2. OTHER LIPID MODIFYING AGENTS [Concomitant]
  3. NITROGLYCERIN [Concomitant]
  4. ALL OTHER THERAPEUTIC PRODUCTS [Concomitant]
  5. ASPIRIN [Concomitant]
  6. BETA BLOCKING AGENTS [Concomitant]
  7. CLOPIDOGREL BISULFATE [Suspect]
     Route: 065
     Dates: start: 20090225
  8. CALCIUM CHANNEL BLOCKERS [Concomitant]
  9. CLOPIDOGREL BISULFATE [Suspect]
     Indication: PERCUTANEOUS CORONARY INTERVENTION
     Route: 048
     Dates: start: 20090224, end: 20090224

REACTIONS (5)
  - ACUTE CORONARY SYNDROME [None]
  - TROPONIN INCREASED [None]
  - CHEST PAIN [None]
  - HYPERTENSIVE CRISIS [None]
  - BLOOD PRESSURE INCREASED [None]
